FAERS Safety Report 25038809 (Version 1)
Quarter: 2025Q1

REPORT INFORMATION
  Report Type: Spontaneous
  Country: CA (occurrence: CA)
  Receive Date: 20250304
  Receipt Date: 20250304
  Transmission Date: 20250408
  Serious: Yes (Other)
  Sender: JOHNSON AND JOHNSON
  Company Number: CA-JNJFOC-20250258121

PATIENT

DRUGS (2)
  1. RISPERDAL [Suspect]
     Active Substance: RISPERIDONE
     Indication: Irritability
     Route: 048
  2. RISPERDAL [Suspect]
     Active Substance: RISPERIDONE

REACTIONS (7)
  - Intracranial pressure increased [Unknown]
  - Irritability [Unknown]
  - Autonomic nervous system imbalance [Unknown]
  - Neuritis [Unknown]
  - Neurotransmitter level altered [Unknown]
  - Sleep disorder [Unknown]
  - Mental disorder [Unknown]
